FAERS Safety Report 13843418 (Version 3)
Quarter: 2017Q4

REPORT INFORMATION
  Report Type: Spontaneous
  Country: AU (occurrence: AU)
  Receive Date: 20170808
  Receipt Date: 20171110
  Transmission Date: 20180320
  Serious: Yes (Life-Threatening, Hospitalization, Other)
  Sender: FDA-Public Use
  Company Number: AU-AMGEN-AUSSP2017118700

PATIENT
  Age: 66 Year
  Sex: Male

DRUGS (5)
  1. RANITIDINE. [Concomitant]
     Active Substance: RANITIDINE
     Dosage: UNK
  2. CELEBREX [Concomitant]
     Active Substance: CELECOXIB
     Dosage: UNK
  3. LORATADINE. [Concomitant]
     Active Substance: LORATADINE
     Dosage: 10 MG, 2X/DAY
     Route: 048
  4. ENBREL [Suspect]
     Active Substance: ETANERCEPT
     Indication: ANKYLOSING SPONDYLITIS
     Dosage: 50 MG, WEEKLY
     Route: 058
     Dates: start: 2010, end: 2017
  5. ENBREL [Suspect]
     Active Substance: ETANERCEPT
     Dosage: UNK
     Route: 065

REACTIONS (22)
  - Arthralgia [Recovered/Resolved]
  - Swollen tongue [Recovered/Resolved]
  - Obstructive airways disorder [Recovered/Resolved]
  - Liver function test abnormal [Unknown]
  - Hepatic cyst [Unknown]
  - Ankylosing spondylitis [Unknown]
  - Angioedema [Recovered/Resolved]
  - Pulmonary embolism [Recovered/Resolved]
  - Weight decreased [Unknown]
  - Pain in extremity [Recovered/Resolved]
  - Tenosynovitis [Recovered/Resolved]
  - Condition aggravated [Unknown]
  - Dysphagia [Unknown]
  - Deep vein thrombosis [Recovered/Resolved]
  - Neoplasm malignant [Unknown]
  - Swelling face [Recovered/Resolved]
  - Normocytic anaemia [Unknown]
  - Pleuritic pain [Recovered/Resolved]
  - Infection [Recovered/Resolved]
  - Dysphonia [Unknown]
  - Chest pain [Recovered/Resolved]
  - Drug ineffective [Unknown]
